FAERS Safety Report 20605884 (Version 1)
Quarter: 2022Q1

REPORT INFORMATION
  Report Type: Spontaneous
  Country: US (occurrence: US)
  Receive Date: 20220317
  Receipt Date: 20220317
  Transmission Date: 20220423
  Serious: Yes (Death, Other)
  Sender: FDA-Public Use
  Company Number: US-ALVOGEN-2022-ALVOGEN-118871

PATIENT
  Age: 26 Year
  Sex: Male

DRUGS (5)
  1. DEXTROAMPHET SACCHARAT, AMPHET ASPARTATE, DEXTROAMPHET SULFATE AND AMP [Suspect]
     Active Substance: AMPHETAMINE ASPARTATE\AMPHETAMINE SULFATE\DEXTROAMPHETAMINE SACCHARATE\DEXTROAMPHETAMINE SULFATE
     Indication: Drug abuse
     Dosage: INGESTION PLUS UNKNOWN
  2. MIDOMAFETAMINE [Suspect]
     Active Substance: MIDOMAFETAMINE
     Indication: Drug abuse
     Dosage: INGESTION PLUS UNKNOWN
  3. METHAMPHETAMINE HYDROCHLORIDE [Suspect]
     Active Substance: METHAMPHETAMINE HYDROCHLORIDE
     Indication: Drug abuse
     Dosage: INGESTION PLUS UNKNOWN
  4. COCAINE [Suspect]
     Active Substance: COCAINE
     Indication: Drug abuse
     Dosage: INGESTION PLUS UNKNOWN
  5. CATHINONE [Suspect]
     Active Substance: CATHINONE
     Indication: Drug abuse
     Dosage: INGESTION PLUS UNKNOWN

REACTIONS (1)
  - Drug abuse [Fatal]
